FAERS Safety Report 13104871 (Version 1)
Quarter: 2017Q1

REPORT INFORMATION
  Report Type: Spontaneous
  Country: US (occurrence: US)
  Receive Date: 20170111
  Receipt Date: 20170111
  Transmission Date: 20170428
  Serious: Yes (Hospitalization, Other)
  Sender: FDA-Public Use
  Company Number: US-PFIZER INC-2017006191

PATIENT
  Sex: Female

DRUGS (1)
  1. PREMARIN [Suspect]
     Active Substance: ESTROGENS, CONJUGATED
     Dosage: 0.5 MG, UNK (TOOK IT 5 TIMES)

REACTIONS (4)
  - Loss of consciousness [Recovered/Resolved]
  - Cerebral disorder [Recovered/Resolved]
  - Memory impairment [Recovered/Resolved]
  - Rectal haemorrhage [Unknown]
